FAERS Safety Report 6176698-7 (Version None)
Quarter: 2009Q2

REPORT INFORMATION
  Report Type: 
  Country: None (occurrence: None)
  Receive Date: 20090501
  Receipt Date: 20090422
  Transmission Date: 20091009
  Serious: Yes (Other)
  Sender: FDA-Public Use
  Company Number: US-PFIZER INC-2009181441

PATIENT
  Sex: Female
  Weight: 77.098 kg

DRUGS (15)
  1. LIPITOR [Suspect]
     Indication: HYPERLIPIDAEMIA
     Dosage: 10 MG, 1X/DAY
     Route: 048
     Dates: start: 20061219, end: 20090324
  2. BYETTA [Suspect]
     Indication: TYPE 2 DIABETES MELLITUS
     Dosage: 10 MG, 2X/DAY
     Route: 058
     Dates: start: 20071206, end: 20081223
  3. LOPID [Concomitant]
     Dosage: UNK
  4. LUTEIN [Concomitant]
     Dosage: UNK
  5. ASPIRIN [Concomitant]
     Dosage: UNK
  6. BIOTIN [Concomitant]
     Dosage: UNK
  7. METOPROLOL TARTRATE [Concomitant]
     Dosage: UNK
  8. MAGNESIUM OXIDE [Concomitant]
     Dosage: UNK
  9. METFORMIN HCL [Concomitant]
     Dosage: UNK
  10. CALCIUM [Concomitant]
     Dosage: UNK
  11. VITAMIN D [Concomitant]
     Dosage: UNK
  12. CO-Q-10 [Concomitant]
     Dosage: UNK
  13. OMEGA [Concomitant]
     Dosage: UNK
  14. QUINAPRIL HYDROCHLORIDE [Concomitant]
     Dosage: UNK
  15. DYAZIDE [Concomitant]
     Dosage: UNK

REACTIONS (2)
  - BLOOD AMYLASE INCREASED [None]
  - LIPASE INCREASED [None]
